FAERS Safety Report 18390592 (Version 2)
Quarter: 2020Q4

REPORT INFORMATION
  Report Type: Report from Study
  Country: US (occurrence: US)
  Receive Date: 20201015
  Receipt Date: 20201117
  Transmission Date: 20210114
  Serious: No
  Sender: FDA-Public Use
  Company Number: NVSC2020US274655

PATIENT
  Sex: Female

DRUGS (1)
  1. COSENTYX [Suspect]
     Active Substance: SECUKINUMAB
     Indication: PSORIATIC ARTHROPATHY
     Dosage: 300 MG, UNKNOWN (EVERY WEEK X 5 THEN EVERY 4 WEEKS)
     Route: 058

REACTIONS (3)
  - Asthma [Unknown]
  - Respiratory syncytial virus infection [Unknown]
  - Arthralgia [Recovering/Resolving]
